FAERS Safety Report 8183788-6 (Version None)
Quarter: 2012Q1

REPORT INFORMATION
  Report Type: 
  Country: None (occurrence: None)
  Receive Date: 20120305
  Receipt Date: 20120301
  Transmission Date: 20120608
  Serious: Yes (Life-Threatening, Hospitalization, Disabling, Other)
  Sender: FDA-Public Use
  Company Number: PHHY2011CA38786

PATIENT
  Sex: Male

DRUGS (12)
  1. VITAMIN B-12 [Concomitant]
  2. CITALOPRAM HYDROBROMIDE [Concomitant]
  3. EXJADE [Suspect]
     Indication: MYELODYSPLASTIC SYNDROME
     Dosage: 1500 MG, QD
     Route: 048
  4. EXJADE [Suspect]
     Indication: IRON OVERLOAD
     Dosage: 1500 MG, QD
     Route: 048
     Dates: start: 20081201
  5. EXJADE [Suspect]
     Dosage: 1000-1500 MG QD
     Route: 048
  6. TRAZODONE HCL [Concomitant]
  7. PREDNISONE TAB [Concomitant]
     Dosage: 5 MG, QOD
  8. VITAMIN D [Concomitant]
  9. ACTONEL [Concomitant]
  10. EXJADE [Suspect]
     Dosage: 750 MG, UNK
     Route: 048
     Dates: start: 20091117
  11. EXJADE [Suspect]
     Dosage: 750 MG, UNK
     Route: 048
  12. CALCIUM [Concomitant]

REACTIONS (9)
  - FEELING ABNORMAL [None]
  - FALL [None]
  - PLATELET COUNT DECREASED [None]
  - MEMORY IMPAIRMENT [None]
  - CEREBROVASCULAR ACCIDENT [None]
  - ABASIA [None]
  - HEMIPARESIS [None]
  - HAEMORRHAGE INTRACRANIAL [None]
  - HEMIPLEGIA [None]
